FAERS Safety Report 5468013-9 (Version None)
Quarter: 2007Q3

REPORT INFORMATION
  Report Type: 
  Country: None (occurrence: None)
  Receive Date: 20070926
  Receipt Date: 20070920
  Transmission Date: 20080115
  Serious: Yes (Death, Hospitalization)
  Sender: FDA-Public Use
  Company Number: US-ASTRAZENECA-2006UW22419

PATIENT
  Age: 996 Month
  Sex: Female
  Weight: 59.1 kg

DRUGS (4)
  1. SEROQUEL [Suspect]
     Indication: PANIC ATTACK
     Route: 048
     Dates: start: 19990101, end: 20050101
  2. CLOZARIL [Concomitant]
     Dates: start: 20020501
  3. HALDOL [Concomitant]
     Dates: start: 20020501
  4. PAXIL [Concomitant]
     Dates: start: 20020501

REACTIONS (5)
  - DEHYDRATION [None]
  - HYPERGLYCAEMIA [None]
  - OVERDOSE [None]
  - OXYGEN SATURATION DECREASED [None]
  - PNEUMONIA [None]
